FAERS Safety Report 6215513-X (Version None)
Quarter: 2009Q2

REPORT INFORMATION
  Report Type: 
  Country: None (occurrence: None)
  Receive Date: 20090603
  Receipt Date: 20090602
  Transmission Date: 20091009
  Serious: Yes (Death)
  Sender: FDA-Public Use
  Company Number: LIT-609-001

PATIENT
  Age: 7 Year

DRUGS (1)
  1. LIDOCAINE [Suspect]
     Indication: MYOCLONIC EPILEPSY
     Dosage: 5 TIMES A DAY, ORAL
     Route: 048

REACTIONS (2)
  - ELECTROENCEPHALOGRAM ABNORMAL [None]
  - SUDDEN DEATH [None]
